FAERS Safety Report 4577808-5 (Version None)
Quarter: 2005Q1

REPORT INFORMATION
  Report Type: 
  Country: None (occurrence: None)
  Receive Date: 20050209
  Receipt Date: 20050124
  Transmission Date: 20050727
  Serious: Yes (Death)
  Sender: FDA-Public Use
  Company Number: USA050188195

PATIENT
  Age: 49 Year
  Sex: Male

DRUGS (1)
  1. HUMULIN N [Suspect]

REACTIONS (3)
  - MURDER [None]
  - OVERDOSE [None]
  - PHARMACEUTICAL PRODUCT COMPLAINT [None]
